FAERS Safety Report 18855128 (Version 2)
Quarter: 2021Q1

REPORT INFORMATION
  Report Type: Spontaneous
  Country: DE (occurrence: DE)
  Receive Date: 20210206
  Receipt Date: 20210213
  Transmission Date: 20210420
  Serious: No
  Sender: FDA-Public Use
  Company Number: DE-AMGEN-DEUSP2021019960

PATIENT
  Sex: Female

DRUGS (1)
  1. AIMOVIG [Suspect]
     Active Substance: ERENUMAB-AOOE
     Indication: MIGRAINE
     Dosage: 70 MILLIGRAM EVERY 4 WEEKS
     Route: 065
     Dates: start: 201909

REACTIONS (4)
  - Paranasal sinus hypersecretion [Unknown]
  - Drug ineffective [Unknown]
  - Injection site pain [Unknown]
  - Injection site extravasation [Unknown]
